FAERS Safety Report 23240859 (Version 1)
Quarter: 2023Q4

REPORT INFORMATION
  Report Type: Spontaneous
  Country: US (occurrence: US)
  Receive Date: 20231129
  Receipt Date: 20231129
  Transmission Date: 20240110
  Serious: Yes (Hospitalization)
  Sender: FDA-Public Use
  Company Number: US-ELI_LILLY_AND_COMPANY-US202311011040

PATIENT
  Age: 75 Year
  Sex: Male

DRUGS (2)
  1. MOUNJARO [Suspect]
     Active Substance: TIRZEPATIDE
     Indication: Product used for unknown indication
     Dosage: 15 MG, UNKNOWN
     Route: 058
     Dates: start: 202309
  2. MOUNJARO [Suspect]
     Active Substance: TIRZEPATIDE
     Dosage: 7.5 MG, UNKNOWN
     Route: 058

REACTIONS (7)
  - Gait disturbance [Unknown]
  - Dysarthria [Unknown]
  - Bradyphrenia [Unknown]
  - Pain [Unknown]
  - Balance disorder [Unknown]
  - Tremor [Unknown]
  - Anxiety [Unknown]

NARRATIVE: CASE EVENT DATE: 20231116
